FAERS Safety Report 6824370-X (Version None)
Quarter: 2010Q3

REPORT INFORMATION
  Report Type: 
  Country: None (occurrence: None)
  Receive Date: 20100708
  Receipt Date: 20061017
  Transmission Date: 20110219
  Serious: No
  Sender: FDA-Public Use
  Company Number: US-PFIZER INC-2006132465

PATIENT
  Age: 58 Year
  Sex: Female
  Weight: 61.23 kg

DRUGS (9)
  1. CHANTIX [Suspect]
     Indication: SMOKING CESSATION THERAPY
     Dates: start: 20061010
  2. VYTORIN [Concomitant]
  3. ZELNORM [Concomitant]
     Indication: GASTROINTESTINAL DISORDER
  4. CREON [Concomitant]
  5. ALLEGRA D 24 HOUR [Concomitant]
  6. ALPRAZOLAM [Concomitant]
  7. TPN [Concomitant]
  8. CITRACAL [Concomitant]
  9. EVISTA [Concomitant]

REACTIONS (1)
  - NAUSEA [None]
